FAERS Safety Report 8313078-X (Version None)
Quarter: 2012Q2

REPORT INFORMATION
  Report Type: 
  Country: None (occurrence: None)
  Receive Date: 20120426
  Receipt Date: 20120423
  Transmission Date: 20120825
  Serious: Yes (Other)
  Sender: FDA-Public Use
  Company Number: US-PFIZER INC-2012056536

PATIENT
  Sex: Female
  Weight: 55.33 kg

DRUGS (3)
  1. LIPITOR [Concomitant]
     Dosage: UNK
  2. LYRICA [Suspect]
     Indication: FIBROMYALGIA
     Dosage: 150 MG, 3X/DAY
     Route: 048
  3. XANAX [Concomitant]
     Dosage: UNK

REACTIONS (4)
  - IMPAIRED DRIVING ABILITY [None]
  - MUSCULOSKELETAL DISORDER [None]
  - HYPOAESTHESIA [None]
  - SURGERY [None]
